FAERS Safety Report 14321437 (Version 4)
Quarter: 2018Q1

REPORT INFORMATION
  Report Type: Spontaneous
  Country: DE (occurrence: DE)
  Receive Date: 20171223
  Receipt Date: 20180209
  Transmission Date: 20180509
  Serious: Yes (Other)
  Sender: FDA-Public Use
  Company Number: DE-TEVA-2017-DE-836217

PATIENT
  Age: 76 Year
  Sex: Female

DRUGS (3)
  1. LEVETIRACETAM. [Concomitant]
     Active Substance: LEVETIRACETAM
  2. OFLOXACIN. [Suspect]
     Active Substance: OFLOXACIN
     Route: 047
  3. FLOXAL [Suspect]
     Active Substance: OFLOXACIN
     Indication: POSTOPERATIVE CARE
     Dosage: 4 DRP, FOR BOTH EYES
     Route: 047
     Dates: start: 201701, end: 20170209

REACTIONS (2)
  - Speech disorder [Not Recovered/Not Resolved]
  - Gait disturbance [Recovered/Resolved]

NARRATIVE: CASE EVENT DATE: 201701
